FAERS Safety Report 10431862 (Version 1)
Quarter: 2014Q3

REPORT INFORMATION
  Report Type: Spontaneous
  Country: CN (occurrence: CN)
  Receive Date: 20140905
  Receipt Date: 20140905
  Transmission Date: 20150326
  Serious: Yes (Other)
  Sender: FDA-Public Use
  Company Number: CN-ROCHE-1456249

PATIENT
  Age: 38 Year
  Sex: Male

DRUGS (2)
  1. OXYBUPROCAINE [Concomitant]
     Active Substance: BENOXINATE
  2. RANIBIZUMAB [Suspect]
     Active Substance: RANIBIZUMAB
     Indication: CHOROIDAL NEOVASCULARISATION
     Route: 050

REACTIONS (1)
  - Retinoschisis [Unknown]
